FAERS Safety Report 19989314 (Version 1)
Quarter: 2021Q4

REPORT INFORMATION
  Report Type: Spontaneous
  Country: DE (occurrence: DE)
  Receive Date: 20211025
  Receipt Date: 20211025
  Transmission Date: 20220303
  Serious: Yes (Other)
  Sender: FDA-Public Use
  Company Number: DE-SERVIER-DE201718408

PATIENT

DRUGS (1)
  1. ONIVYDE [Suspect]
     Active Substance: IRINOTECAN HYDROCHLORIDE
     Indication: Product used for unknown indication
     Dosage: DOSE NOT REPORTED
     Route: 065

REACTIONS (6)
  - Sarcoma [Unknown]
  - Haematotoxicity [Unknown]
  - Neutropenia [Unknown]
  - Hepatotoxicity [Unknown]
  - Diarrhoea [Unknown]
  - Neoplasm [Recovering/Resolving]

NARRATIVE: CASE EVENT DATE: 20170101
